FAERS Safety Report 12972728 (Version 3)
Quarter: 2017Q1

REPORT INFORMATION
  Report Type: Report from Study
  Country: US (occurrence: US)
  Receive Date: 20161124
  Receipt Date: 20170331
  Transmission Date: 20170428
  Serious: Yes (Other)
  Sender: FDA-Public Use
  Company Number: US-AMGEN-USASL2016163632

PATIENT
  Age: 62 Year
  Sex: Female
  Weight: 57.15 kg

DRUGS (14)
  1. TYLENOL [Concomitant]
     Active Substance: ACETAMINOPHEN
     Dosage: 500 MG, UNK
     Route: 048
  2. ZESTRIL [Concomitant]
     Active Substance: LISINOPRIL
     Dosage: 10 MG, QD
     Route: 048
  3. TUMS SMOOTHIES [Concomitant]
     Active Substance: CALCIUM CARBONATE
     Dosage: 750 MG, UNK
     Route: 048
  4. FLONASE [Concomitant]
     Active Substance: FLUTICASONE PROPIONATE
     Dosage: 50 MUG, UNK
     Route: 045
  5. NORMODYNE [Concomitant]
     Active Substance: LABETALOL HYDROCHLORIDE
     Dosage: 100 MG, BID (1 OR 1/2 TABS OR 150 MG ORAL TWICE DAILY)
     Route: 048
  6. PRINIVIL [Concomitant]
     Active Substance: LISINOPRIL
     Dosage: 10 MG, QD
     Route: 048
  7. REPATHA [Suspect]
     Active Substance: EVOLOCUMAB
     Indication: TYPE IIA HYPERLIPIDAEMIA
     Dosage: 140 MG, Q2WK
     Route: 058
     Dates: end: 20161114
  8. REPATHA [Suspect]
     Active Substance: EVOLOCUMAB
     Indication: BLOOD CHOLESTEROL INCREASED
  9. ZYRTEC [Concomitant]
     Active Substance: CETIRIZINE HYDROCHLORIDE
     Dosage: 10 MG, UNK
     Route: 048
  10. SKELAXIN [Concomitant]
     Active Substance: METAXALONE
     Dosage: 800 MG (TAKE 400MG TO 800 MG), AS NECESSARY
  11. MULTIVITAMIN [Concomitant]
     Active Substance: VITAMINS
     Route: 048
  12. NORCO [Concomitant]
     Active Substance: ACETAMINOPHEN\HYDROCODONE BITARTRATE
     Indication: PAIN
     Dosage: 5 TO 325 MG PER TABLET, TAKE 1 TO2 PO Q1 TO Q6HR PRF
     Route: 048
  13. ADVIL [Concomitant]
     Active Substance: IBUPROFEN
     Dosage: 200 MG, UNK
     Route: 048
  14. PRILOSEC [Concomitant]
     Active Substance: OMEPRAZOLE MAGNESIUM
     Dosage: 20 MG, QD
     Route: 048

REACTIONS (17)
  - Myalgia [Not Recovered/Not Resolved]
  - Feeling abnormal [Recovered/Resolved]
  - Influenza [Unknown]
  - Depression [Not Recovered/Not Resolved]
  - Insomnia [Unknown]
  - Emotional disorder [Unknown]
  - Feeling cold [Not Recovered/Not Resolved]
  - Inflammation [Not Recovered/Not Resolved]
  - Fatigue [Not Recovered/Not Resolved]
  - Pain [Unknown]
  - Throat tightness [Not Recovered/Not Resolved]
  - Blood pressure abnormal [Unknown]
  - Asthenia [Not Recovered/Not Resolved]
  - Hyperhidrosis [Unknown]
  - Malaise [Not Recovered/Not Resolved]
  - Arthralgia [Not Recovered/Not Resolved]
  - Back pain [Not Recovered/Not Resolved]

NARRATIVE: CASE EVENT DATE: 2016
